FAERS Safety Report 14929767 (Version 1)
Quarter: 2018Q2

REPORT INFORMATION
  Report Type: Spontaneous
  Country: US (occurrence: US)
  Receive Date: 20180523
  Receipt Date: 20180523
  Transmission Date: 20180711
  Serious: No
  Sender: FDA-Public Use
  Company Number: US-ARALEZ PHARMACEUTICALS R+D INC.-2018-ARA-001171

PATIENT
  Age: 49 Year
  Sex: Female

DRUGS (1)
  1. TOPROL XL [Suspect]
     Active Substance: METOPROLOL SUCCINATE
     Indication: ARRHYTHMIA
     Dosage: HALF OF 25 MG TABLET IN THE MORNING AND HALF OF 25 MG TABLET IN THE EVENING

REACTIONS (3)
  - Product substitution issue [Unknown]
  - Inappropriate schedule of drug administration [Unknown]
  - Abdominal discomfort [Unknown]

NARRATIVE: CASE EVENT DATE: 20180510
